FAERS Safety Report 9537723 (Version 2)
Quarter: 2013Q4

REPORT INFORMATION
  Report Type: Spontaneous
  Country: US (occurrence: US)
  Receive Date: 20130919
  Receipt Date: 20131030
  Transmission Date: 20140711
  Serious: No
  Sender: FDA-Public Use
  Company Number: US-009507513-1309USA008347

PATIENT
  Age: 77 Year
  Sex: Female
  Weight: 49.89 kg

DRUGS (3)
  1. OXYTROL FOR WOMEN [Suspect]
     Indication: HYPERTONIC BLADDER
     Dosage: 3.9 MG, UNKNOWN
     Route: 062
     Dates: start: 20130906, end: 20130919
  2. SYNTHROID [Concomitant]
     Indication: THYROID DISORDER
     Dosage: 75 MG, UNKNOWN
  3. HYDROCHLOROT [Concomitant]
     Indication: HYPERTENSION
     Dosage: 12.5 MG, UNKNOWN

REACTIONS (2)
  - Therapeutic response unexpected [Unknown]
  - Drug ineffective [Unknown]
